FAERS Safety Report 25585496 (Version 1)
Quarter: 2025Q3

REPORT INFORMATION
  Report Type: Spontaneous
  Country: US (occurrence: None)
  Receive Date: 20250718
  Receipt Date: 20250718
  Transmission Date: 20251020
  Serious: Yes (Death)
  Sender: FDA-CTU
  Company Number: None

PATIENT
  Age: 47 Year
  Sex: Male

DRUGS (1)
  1. SYMTUZA [Suspect]
     Active Substance: COBICISTAT\DARUNAVIR\EMTRICITABINE\TENOFOVIR ALAFENAMIDE
     Indication: HIV infection
     Dosage: OTHER QUANTITY : 800/150/200/10 MG;?FREQUENCY : DAILY;?
     Route: 048
     Dates: start: 20200302, end: 20250718

REACTIONS (1)
  - Death [None]

NARRATIVE: CASE EVENT DATE: 20250718
